FAERS Safety Report 15667215 (Version 1)
Quarter: 2018Q4

REPORT INFORMATION
  Report Type: Spontaneous
  Country: US (occurrence: US)
  Receive Date: 20181128
  Receipt Date: 20181128
  Transmission Date: 20190205
  Serious: No
  Sender: FDA-Public Use
  Company Number: US-ROCHE-2134976

PATIENT
  Sex: Female

DRUGS (1)
  1. OCREVUS [Suspect]
     Active Substance: OCRELIZUMAB
     Indication: RELAPSING MULTIPLE SCLEROSIS
     Dosage: CURRENT DOSE OF OCREVUS 600 MG EVERY 6 MONTHS
     Route: 065
     Dates: start: 20180420

REACTIONS (4)
  - Toothache [Unknown]
  - Lacrimation increased [Unknown]
  - Rhinalgia [Unknown]
  - Ill-defined disorder [Unknown]

NARRATIVE: CASE EVENT DATE: 20180529
